FAERS Safety Report 13974411 (Version 1)
Quarter: 2017Q3

REPORT INFORMATION
  Report Type: Spontaneous
  Country: US (occurrence: US)
  Receive Date: 20170915
  Receipt Date: 20170915
  Transmission Date: 20171128
  Serious: No
  Sender: FDA-Public Use
  Company Number: US-009507513-1708USA007081

PATIENT

DRUGS (1)
  1. BELSOMRA [Suspect]
     Active Substance: SUVOREXANT
     Dosage: 15 MG FOR THE FIRST TIME, AND 90 MG FOR THE SECOND TIME
     Route: 048

REACTIONS (3)
  - Product use issue [Unknown]
  - No adverse event [Unknown]
  - Overdose [Unknown]
